FAERS Safety Report 23380445 (Version 2)
Quarter: 2025Q2

REPORT INFORMATION
  Report Type: Report from Study
  Country: DE (occurrence: DE)
  Receive Date: 20240109
  Receipt Date: 20250505
  Transmission Date: 20250717
  Serious: Yes (Hospitalization, Other)
  Sender: AUROBINDO
  Company Number: DE-ELI_LILLY_AND_COMPANY-DE202312010137

PATIENT
  Age: 74 Year
  Sex: Female

DRUGS (3)
  1. DULOXETINE [Suspect]
     Active Substance: DULOXETINE
     Indication: Depression
     Dosage: 90 MILLIGRAM, ONCE A DAY
     Route: 065
  2. DOXEPIN [Suspect]
     Active Substance: DOXEPIN
     Indication: Depression
     Dosage: 25 MILLIGRAM, ONCE A DAY
     Route: 065
  3. CLONIDINE [Concomitant]
     Active Substance: CLONIDINE
     Indication: Depression
     Dosage: 0.15 MILLIGRAM, ONCE A DAY (0.15 MG, FOUR TIMES DAILY)
     Route: 065

REACTIONS (4)
  - Phaeochromocytoma [Recovering/Resolving]
  - Paraganglion neoplasm [Recovering/Resolving]
  - Hypertension [Unknown]
  - Blood catecholamines increased [Recovering/Resolving]
